FAERS Safety Report 25469788 (Version 2)
Quarter: 2025Q3

REPORT INFORMATION
  Report Type: Spontaneous
  Country: US (occurrence: US)
  Receive Date: 20250623
  Receipt Date: 20250811
  Transmission Date: 20251020
  Serious: No
  Sender: PFIZER
  Company Number: US-PFIZER INC-202500124517

PATIENT
  Age: 25 Year
  Sex: Female

DRUGS (1)
  1. VELSIPITY [Suspect]
     Active Substance: ETRASIMOD ARGININE

REACTIONS (4)
  - Hypersensitivity [Recovered/Resolved]
  - Muscle tightness [Recovered/Resolved]
  - Throat irritation [Recovered/Resolved]
  - Pain in jaw [Recovered/Resolved]
